FAERS Safety Report 10042301 (Version 1)
Quarter: 2014Q1

REPORT INFORMATION
  Report Type: Spontaneous
  Country: US (occurrence: None)
  Receive Date: 20140325
  Receipt Date: 20140325
  Transmission Date: 20141002
  Serious: Yes (Death, Hospitalization)
  Sender: FDA-Public Use
  Company Number: 2014P1002247

PATIENT
  Age: 53 Year
  Sex: Male

DRUGS (6)
  1. DILTIAZEM [Suspect]
     Route: 048
  2. PROPRANOLOL [Suspect]
     Route: 048
  3. WARFARIN [Concomitant]
  4. LORAZEPAM [Concomitant]
  5. OLMESARTAN [Concomitant]
  6. FLUOXETINE [Concomitant]

REACTIONS (10)
  - Respiratory failure [None]
  - Blood glucose increased [None]
  - Hypoxia [None]
  - Atrioventricular block complete [None]
  - Cardiac arrest [None]
  - Bradycardia [None]
  - Coronary artery stenosis [None]
  - Myocardial ischaemia [None]
  - Drug interaction [None]
  - Blood pressure systolic decreased [None]
